FAERS Safety Report 7638172-8 (Version None)
Quarter: 2011Q3

REPORT INFORMATION
  Report Type: 
  Country: None (occurrence: None)
  Receive Date: 20110727
  Receipt Date: 20110718
  Transmission Date: 20111222
  Serious: Yes (Other)
  Sender: FDA-Public Use
  Company Number: IT-JNJFOC-20110705015

PATIENT
  Sex: Male

DRUGS (1)
  1. DOXORUBICIN HCL [Suspect]
     Indication: LYMPHOMA
     Route: 042
     Dates: start: 20110628, end: 20110628

REACTIONS (2)
  - LARYNGEAL OEDEMA [None]
  - BACK PAIN [None]
